FAERS Safety Report 7998962-9 (Version None)
Quarter: 2011Q4

REPORT INFORMATION
  Report Type: 
  Country: None (occurrence: None)
  Receive Date: 20111221
  Receipt Date: 20111215
  Transmission Date: 20120403
  Serious: Yes (Other)
  Sender: FDA-Public Use
  Company Number: CHPA2011US018202

PATIENT
  Age: 69 Year
  Sex: Male

DRUGS (5)
  1. LIPITOR [Concomitant]
  2. MAALOX ANTACID TABLETS - UNKNOWN [Suspect]
     Indication: GASTROOESOPHAGEAL REFLUX DISEASE
     Dosage: UNK, UNK
     Route: 048
  3. BACLOFEN [Concomitant]
  4. PLAVIX [Concomitant]
  5. ZETIA [Concomitant]

REACTIONS (5)
  - IMMOBILE [None]
  - APHASIA [None]
  - OFF LABEL USE [None]
  - CEREBROVASCULAR ACCIDENT [None]
  - BLADDER DISORDER [None]
